FAERS Safety Report 12546142 (Version 2)
Quarter: 2016Q3

REPORT INFORMATION
  Report Type: Spontaneous
  Country: US (occurrence: US)
  Receive Date: 20160711
  Receipt Date: 20160726
  Transmission Date: 20161109
  Serious: Yes (Other)
  Sender: FDA-Public Use
  Company Number: US-DSJP-DSU-2016-115300

PATIENT

DRUGS (1)
  1. BENICAR HCT [Suspect]
     Active Substance: HYDROCHLOROTHIAZIDE\OLMESARTAN MEDOXOMIL
     Indication: HYPERTENSION
     Dosage: 40/25MG, QD
     Route: 048
     Dates: start: 201006, end: 201507

REACTIONS (8)
  - Haemorrhoids [Not Recovered/Not Resolved]
  - Diverticulum intestinal [Not Recovered/Not Resolved]
  - Metaplasia [Recovered/Resolved]
  - Dizziness [Recovered/Resolved]
  - Large intestine polyp [Recovered/Resolved]
  - Constipation [Recovered/Resolved]
  - Urate nephropathy [Unknown]
  - Malabsorption [Recovered/Resolved]

NARRATIVE: CASE EVENT DATE: 20110615
